FAERS Safety Report 6011766-1 (Version None)
Quarter: 2008Q4

REPORT INFORMATION
  Report Type: 
  Country: None (occurrence: None)
  Receive Date: 20081218
  Receipt Date: 20071227
  Transmission Date: 20090506
  Serious: No
  Sender: FDA-Public Use
  Company Number: US-ABBOTT-07P-163-0431444-00

PATIENT
  Sex: Female

DRUGS (6)
  1. MERIDIA [Suspect]
     Indication: WEIGHT CONTROL
     Route: 048
     Dates: start: 20071219, end: 20071226
  2. VALIUM [Suspect]
     Indication: MUSCLE SPASMS
     Route: 048
     Dates: start: 20071214, end: 20071226
  3. IBUPROFEN [Suspect]
     Indication: BACK PAIN
     Route: 048
     Dates: start: 20071214, end: 20071226
  4. OXYCODONE HCL [Suspect]
     Indication: BACK PAIN
     Route: 048
     Dates: start: 20071214
  5. OXYCODONE HCL [Suspect]
     Indication: MUSCLE SPASMS
  6. OXYCODONE HCL [Suspect]
     Indication: INTERVERTEBRAL DISC PROTRUSION

REACTIONS (2)
  - PRURITUS [None]
  - URTICARIA [None]
